FAERS Safety Report 8105713-6 (Version None)
Quarter: 2012Q1

REPORT INFORMATION
  Report Type: 
  Country: None (occurrence: None)
  Receive Date: 20120201
  Receipt Date: 20120119
  Transmission Date: 20120608
  Serious: Yes (Hospitalization)
  Sender: FDA-Public Use
  Company Number: US-ELI_LILLY_AND_COMPANY-US201011006188

PATIENT
  Sex: Female
  Weight: 68.934 kg

DRUGS (9)
  1. FORTEO [Suspect]
     Dosage: 20 UG, QD
     Route: 058
  2. FORTEO [Suspect]
     Indication: OSTEOPOROSIS
     Dosage: 20 UG, DAILY (1/D)
     Route: 058
     Dates: start: 20101117
  3. AVAPRO [Concomitant]
  4. NAMENDA [Concomitant]
  5. VITAMIN D [Concomitant]
  6. FORTEO [Suspect]
     Dosage: 20 UG, QD
     Route: 058
  7. FORTEO [Suspect]
     Dosage: 20 UG, QD
  8. FORTEO [Suspect]
     Dosage: 20 UG, QD
     Route: 058
  9. PRAVASTATIN [Concomitant]

REACTIONS (9)
  - ARTHRALGIA [None]
  - EAR PAIN [None]
  - MEDICAL DEVICE COMPLICATION [None]
  - DIZZINESS [None]
  - HEARING IMPAIRED [None]
  - IMPAIRED HEALING [None]
  - PAIN IN EXTREMITY [None]
  - BACK PAIN [None]
  - EAR INFECTION [None]
